FAERS Safety Report 10266967 (Version 1)
Quarter: 2014Q2

REPORT INFORMATION
  Report Type: Report from Study
  Country: US (occurrence: US)
  Receive Date: 20140630
  Receipt Date: 20140630
  Transmission Date: 20141212
  Serious: Yes (Other)
  Sender: FDA-Public Use
  Company Number: US-BIOGENIDEC-2014BI060881

PATIENT
  Sex: Female

DRUGS (1)
  1. AVONEX [Suspect]
     Indication: MULTIPLE SCLEROSIS
     Route: 030
     Dates: start: 20040201

REACTIONS (6)
  - Fall [Recovered/Resolved]
  - Femur fracture [Unknown]
  - Loss of control of legs [Unknown]
  - Abasia [Unknown]
  - Anger [Unknown]
  - Headache [Unknown]
